FAERS Safety Report 13962175 (Version 1)
Quarter: 2017Q3

REPORT INFORMATION
  Report Type: Spontaneous
  Country: FR (occurrence: FR)
  Receive Date: 20170912
  Receipt Date: 20170912
  Transmission Date: 20171128
  Serious: Yes (Other)
  Sender: FDA-Public Use
  Company Number: FR-MERCK KGAA-2025966

PATIENT
  Sex: Female

DRUGS (1)
  1. NOVOTHYROX [Suspect]
     Active Substance: LEVOTHYROXINE SODIUM
     Indication: PRODUCT USED FOR UNKNOWN INDICATION
     Route: 065
     Dates: start: 201706

REACTIONS (7)
  - Hyperthyroidism [Unknown]
  - Dry skin [Unknown]
  - Feeling jittery [Unknown]
  - Weight decreased [Unknown]
  - Insomnia [Unknown]
  - Agitation [Unknown]
  - Headache [Unknown]

NARRATIVE: CASE EVENT DATE: 201706
